FAERS Safety Report 24047282 (Version 1)
Quarter: 2024Q3

REPORT INFORMATION
  Report Type: Spontaneous
  Country: US (occurrence: None)
  Receive Date: 20240702
  Receipt Date: 20240702
  Transmission Date: 20241017
  Serious: Yes (Hospitalization, Other)
  Sender: Public
  Company Number: None

PATIENT
  Age: 12 Year
  Sex: Female
  Weight: 72 kg

DRUGS (1)
  1. DUPILUMAB [Suspect]
     Active Substance: DUPILUMAB

REACTIONS (3)
  - Colitis [None]
  - Peripheral artery thrombosis [None]
  - Anti-neutrophil cytoplasmic antibody positive vasculitis [None]

NARRATIVE: CASE EVENT DATE: 20231219
